FAERS Safety Report 15291527 (Version 16)
Quarter: 2020Q3

REPORT INFORMATION
  Report Type: Report from Study
  Country: US (occurrence: US)
  Receive Date: 20180817
  Receipt Date: 20200823
  Transmission Date: 20201102
  Serious: Yes (Death, Hospitalization, Other)
  Sender: FDA-Public Use
  Company Number: US-ACTELION-A-NJ2018-177434

PATIENT
  Age: 67 Year
  Sex: Female
  Weight: 79.37 kg

DRUGS (12)
  1. OPSUMIT [Suspect]
     Active Substance: MACITENTAN
     Indication: PULMONARY ARTERIAL HYPERTENSION
     Dosage: 10 MG, QD
     Route: 048
  2. TORSEMIDE. [Concomitant]
     Active Substance: TORSEMIDE
     Dosage: 20 MG, QD
  3. VERAPAMIL [Concomitant]
     Active Substance: VERAPAMIL HYDROCHLORIDE
  4. ADCIRCA [Concomitant]
     Active Substance: TADALAFIL
  5. TADALAFIL. [Concomitant]
     Active Substance: TADALAFIL
  6. SPIRONOLACTONE. [Concomitant]
     Active Substance: SPIRONOLACTONE
     Dosage: 25 MG, QD
  7. LASIX [Concomitant]
     Active Substance: FUROSEMIDE
  8. PLAQUENIL [Concomitant]
     Active Substance: HYDROXYCHLOROQUINE SULFATE
  9. OPSUMIT [Suspect]
     Active Substance: MACITENTAN
     Dosage: 10 MG, QD
     Route: 048
  10. MAXZIDE [Concomitant]
     Active Substance: HYDROCHLOROTHIAZIDE\TRIAMTERENE
  11. TYVASO [Suspect]
     Active Substance: TREPROSTINIL
     Indication: PRODUCT USED FOR UNKNOWN INDICATION
     Route: 065
  12. OXYGEN. [Concomitant]
     Active Substance: OXYGEN
     Dosage: 3 LITERS AT NIGHT

REACTIONS (29)
  - Cardiac failure acute [Unknown]
  - Ligament sprain [Unknown]
  - Presyncope [Unknown]
  - Ankle fracture [Recovered/Resolved]
  - Ascites [Unknown]
  - Vaginal haemorrhage [Recovered/Resolved]
  - Muscle strain [Unknown]
  - Exercise tolerance decreased [Unknown]
  - Urinary tract infection [Unknown]
  - Vomiting [Unknown]
  - Dyspnoea exertional [Unknown]
  - Diarrhoea [Unknown]
  - Pleural effusion [Unknown]
  - Dyspnoea [Unknown]
  - Oral pain [Unknown]
  - Death [Fatal]
  - Syncope [Unknown]
  - Fatigue [Recovering/Resolving]
  - Dizziness postural [Unknown]
  - Chest pain [Unknown]
  - Pain [Unknown]
  - Productive cough [Unknown]
  - Fall [Unknown]
  - Loss of consciousness [Unknown]
  - Headache [Unknown]
  - Drug hypersensitivity [Unknown]
  - Oedema peripheral [Unknown]
  - Concussion [Unknown]
  - Cough [Unknown]

NARRATIVE: CASE EVENT DATE: 201807
